FAERS Safety Report 5387671-0 (Version None)
Quarter: 2007Q3

REPORT INFORMATION
  Report Type: 
  Country: None (occurrence: None)
  Receive Date: 20070712
  Receipt Date: 20070712
  Transmission Date: 20080115
  Serious: Yes (Hospitalization)
  Sender: FDA-Public Use
  Company Number: None

PATIENT
  Sex: Male
  Weight: 54.5 kg

DRUGS (8)
  1. OXALIPLATIN [Suspect]
     Indication: NEOPLASM MALIGNANT
     Dosage: 130MG/M2 Q 21 DAYS  I.V.
     Route: 042
     Dates: start: 20070618
  2. CETUXIMAB [Suspect]
     Indication: NEOPLASM MALIGNANT
     Dosage: 400MG/M2  I.D.250MG  WEEKLY I.V.
     Route: 042
     Dates: start: 20070618
  3. ACIPHEX [Concomitant]
  4. KLOR-CON [Concomitant]
  5. HYDROCHLOROTHIAZIDE [Concomitant]
  6. IRON SULFATETHIAMIN COMPOUND TAB [Concomitant]
  7. CELEBREX [Concomitant]
  8. TRIAMCINOLONE [Concomitant]

REACTIONS (4)
  - DEHYDRATION [None]
  - HYPOKALAEMIA [None]
  - HYPONATRAEMIA [None]
  - HYPOVOLAEMIA [None]
